FAERS Safety Report 17170411 (Version 1)
Quarter: 2019Q4

REPORT INFORMATION
  Report Type: Report from Study
  Country: CA (occurrence: CA)
  Receive Date: 20191218
  Receipt Date: 20191218
  Transmission Date: 20200122
  Serious: Yes (Other)
  Sender: FDA-Public Use
  Company Number: CA-PFIZER INC-2019539254

PATIENT
  Age: 56 Year
  Sex: Female
  Weight: 101 kg

DRUGS (2)
  1. REMICADE [Suspect]
     Active Substance: INFLIXIMAB
     Indication: CROHN^S DISEASE
     Dosage: 500 MG, 1 EVERY 6 WEEK(S)
     Route: 042
  2. METHOTREXATE SODIUM. [Suspect]
     Active Substance: METHOTREXATE SODIUM

REACTIONS (3)
  - Lower respiratory tract infection [Recovered/Resolved]
  - Skin swelling [Recovered/Resolved]
  - Arthropod bite [Recovered/Resolved]
